FAERS Safety Report 5105799-7 (Version None)
Quarter: 2006Q3

REPORT INFORMATION
  Report Type: 
  Country: None (occurrence: None)
  Receive Date: 20060915
  Receipt Date: 20060908
  Transmission Date: 20061208
  Serious: Yes (Hospitalization)
  Sender: FDA-Public Use
  Company Number: FR-ROCHE-462844

PATIENT
  Age: 15 Year
  Sex: Male

DRUGS (2)
  1. ACCUTANE [Suspect]
     Indication: ACNE
     Route: 065
     Dates: start: 20050615, end: 20060415
  2. AMOXICILLIN [Concomitant]
     Indication: BRONCHOPNEUMOPATHY
     Route: 048
     Dates: start: 20060715, end: 20060715

REACTIONS (3)
  - ARTHRALGIA [None]
  - PURPURA [None]
  - RENAL FAILURE ACUTE [None]
